FAERS Safety Report 7458803-5 (Version None)
Quarter: 2011Q2

REPORT INFORMATION
  Report Type: 
  Country: None (occurrence: None)
  Receive Date: 20110504
  Receipt Date: 20100713
  Transmission Date: 20111010
  Serious: No
  Sender: FDA-Public Use
  Company Number: US-SANOFI-AVENTIS-2010SA041745

PATIENT

DRUGS (2)
  1. APIDRA [Suspect]
     Route: 058
  2. APIDRA [Suspect]
     Route: 058

REACTIONS (2)
  - UNEVALUABLE EVENT [None]
  - PRODUCT QUALITY ISSUE [None]
